FAERS Safety Report 4614854-7 (Version None)
Quarter: 2005Q1

REPORT INFORMATION
  Report Type: 
  Country: None (occurrence: None)
  Receive Date: 20050318
  Receipt Date: 20050318
  Transmission Date: 20050727
  Serious: Yes (Other)
  Sender: FDA-Public Use
  Company Number: None

PATIENT
  Sex: Female
  Weight: 72.5755 kg

DRUGS (1)
  1. LEVAQUIN [Suspect]
     Indication: PNEUMONIA
     Dosage: ONE TABLET PER DAY ORAL
     Route: 048

REACTIONS (6)
  - ANXIETY [None]
  - EAR DISORDER [None]
  - FEELING ABNORMAL [None]
  - INSOMNIA [None]
  - NERVOUS SYSTEM DISORDER [None]
  - NIGHTMARE [None]
